FAERS Safety Report 10885711 (Version 1)
Quarter: 2015Q1

REPORT INFORMATION
  Report Type: Spontaneous
  Country: US (occurrence: US)
  Receive Date: 20150304
  Receipt Date: 20150304
  Transmission Date: 20150721
  Serious: No
  Sender: FDA-Public Use
  Company Number: US-TEVA-544056USA

PATIENT
  Sex: Male
  Weight: 86.26 kg

DRUGS (1)
  1. NUVIGIL [Suspect]
     Active Substance: ARMODAFINIL
     Indication: MULTIPLE SCLEROSIS
     Dosage: 250/UNIT DOSE AND FREQUENCY NOT PROVIDED

REACTIONS (1)
  - Product use issue [Unknown]
